FAERS Safety Report 8037123-4 (Version None)
Quarter: 2012Q1

REPORT INFORMATION
  Report Type: 
  Country: None (occurrence: None)
  Receive Date: 20120111
  Receipt Date: 20120109
  Transmission Date: 20120608
  Serious: Yes (Other)
  Sender: FDA-Public Use
  Company Number: US-PFIZER INC-2012006817

PATIENT
  Sex: Male
  Weight: 74.83 kg

DRUGS (3)
  1. ALLEGRA [Concomitant]
     Dosage: 180 MG, 1X/DAY
  2. LIPITOR [Suspect]
     Indication: CORONARY ARTERY BYPASS
     Dosage: 40 MG, 1X/DAY
     Route: 048
     Dates: start: 19990101
  3. ATENOLOL [Concomitant]
     Dosage: UNK

REACTIONS (2)
  - CARDIAC PACEMAKER INSERTION [None]
  - BLOOD PRESSURE ABNORMAL [None]
